FAERS Safety Report 19451031 (Version 1)
Quarter: 2021Q2

REPORT INFORMATION
  Report Type: Report from Study
  Country: None (occurrence: US)
  Receive Date: 20210623
  Receipt Date: 20210623
  Transmission Date: 20210717
  Serious: Yes (Hospitalization, Other)
  Sender: FDA-Public Use
  Company Number: US-ABBVIE-21K-163-3947338-00

PATIENT
  Age: 31 Year
  Sex: Female

DRUGS (3)
  1. VENCLEXTA [Suspect]
     Active Substance: VENETOCLAX
     Dosage: STARTING DAY 4 OF CHEMOTHERAPY THROUGH 28 DAYS, 2 TABLETS FOR 14 DAYS
     Route: 048
     Dates: start: 202106
  2. VENCLEXTA [Suspect]
     Active Substance: VENETOCLAX
     Dosage: STARTING DAY 4 OF CHEMOTHERAPY THROUGH 28 DAYS, 2 TABLETS FOR 14 DAYS
     Route: 048
     Dates: start: 20210511, end: 20210608
  3. VENCLEXTA [Suspect]
     Active Substance: VENETOCLAX
     Indication: MYELODYSPLASTIC SYNDROME
     Dosage: 100MG ON DAY 3 OF CHEMOTHERAPY
     Route: 048
     Dates: start: 20210510, end: 20210510

REACTIONS (3)
  - Platelet count decreased [Unknown]
  - Skin lesion [Unknown]
  - Pain in extremity [Unknown]

NARRATIVE: CASE EVENT DATE: 2021
